FAERS Safety Report 17750480 (Version 10)
Quarter: 2020Q3

REPORT INFORMATION
  Report Type: Report from Study
  Country: JP (occurrence: JP)
  Receive Date: 20200506
  Receipt Date: 20200724
  Transmission Date: 20201102
  Serious: Yes (Hospitalization)
  Sender: FDA-Public Use
  Company Number: JP-EISAI MEDICAL RESEARCH-EC-2020-074229

PATIENT
  Age: 71 Year
  Sex: Male
  Weight: 59.3 kg

DRUGS (15)
  1. LANSOPRAZOLE. [Concomitant]
     Active Substance: LANSOPRAZOLE
     Dates: start: 201901
  2. PEMBROLIZUMAB. [Suspect]
     Active Substance: PEMBROLIZUMAB
     Route: 041
     Dates: start: 20200407, end: 20200407
  3. EURAX [Concomitant]
     Active Substance: CROTAMITON
     Dates: start: 20200219, end: 20200422
  4. PEMBROLIZUMAB. [Suspect]
     Active Substance: PEMBROLIZUMAB
     Indication: HEPATOCELLULAR CARCINOMA
     Route: 041
     Dates: start: 20200115, end: 20200317
  5. SENNOSIDES. [Concomitant]
     Active Substance: SENNOSIDES
     Dates: start: 20200125
  6. DOCUSATE SODIUM. [Concomitant]
     Active Substance: DOCUSATE SODIUM
     Dates: start: 201001
  7. LENVATINIB [Suspect]
     Active Substance: LENVATINIB
     Route: 048
     Dates: start: 20200414
  8. LOXOPROFEN SODIUM [Concomitant]
     Active Substance: LOXOPROFEN SODIUM
     Dates: start: 20200203
  9. METHADERM [Concomitant]
     Active Substance: DEXAMETHASONE DIPROPIONATE
     Dates: start: 20200219, end: 20200422
  10. JARDIANCE [Concomitant]
     Active Substance: EMPAGLIFLOZIN
     Dates: start: 201101
  11. CHONDROITIN SULFATE SODIUM [Concomitant]
     Active Substance: CHONDROITIN SULFATE (CHICKEN)
     Dates: start: 201901
  12. MYSER [Concomitant]
     Dates: start: 20200218, end: 20200519
  13. LENVATINIB [Suspect]
     Active Substance: LENVATINIB
     Indication: HEPATOCELLULAR CARCINOMA
     Route: 048
     Dates: start: 20200115, end: 20200406
  14. KERATINAMIN [Concomitant]
     Active Substance: UREA
     Dates: start: 20200225, end: 20200519
  15. PITAVASTATIN CALCIUM [Concomitant]
     Active Substance: PITAVASTATIN CALCIUM
     Dates: start: 201101, end: 20200501

REACTIONS (1)
  - Rash [Recovered/Resolved]

NARRATIVE: CASE EVENT DATE: 20200423
